FAERS Safety Report 4330950-6 (Version None)
Quarter: 2004Q1

REPORT INFORMATION
  Report Type: 
  Country: None (occurrence: None)
  Receive Date: 20040329
  Receipt Date: 20040316
  Transmission Date: 20041129
  Serious: Yes (Other)
  Sender: FDA-Public Use
  Company Number: B0326936A

PATIENT
  Age: 39 Year
  Sex: Male

DRUGS (2)
  1. LITHIUM SALT (GENERIC) (LITHIUM SALT) [Suspect]
     Indication: BIPOLAR DISORDER
  2. AMITRIPTYLINE HCL [Concomitant]

REACTIONS (1)
  - BASEDOW'S DISEASE [None]
